FAERS Safety Report 23184316 (Version 1)
Quarter: 2023Q4

REPORT INFORMATION
  Report Type: Other
  Country: TR (occurrence: None)
  Receive Date: 20231115
  Receipt Date: 20231115
  Transmission Date: 20240110
  Serious: Yes (Hospitalization)
  Sender: FDA-Public Use
  Company Number: TR-Square-000183

PATIENT
  Age: 11 Year
  Sex: Female
  Weight: 30 kg

DRUGS (5)
  1. CALCIUM GLUCONATE [Suspect]
     Active Substance: CALCIUM GLUCONATE
     Indication: Hypocalcaemia
     Route: 042
  2. CALCIUM CARBONATE [Concomitant]
     Active Substance: CALCIUM CARBONATE
     Indication: Hypocalcaemia
     Route: 048
  3. CHOLECALCIFEROL [Concomitant]
     Active Substance: CHOLECALCIFEROL
     Indication: Hypocalcaemia
  4. CALCITRIOL [Concomitant]
     Active Substance: CALCITRIOL
     Indication: Hypocalcaemia
     Dosage: 0.5 MICROGRAM/DAY
  5. CALCITRIOL [Concomitant]
     Active Substance: CALCITRIOL
     Indication: Hypocalcaemia
     Dosage: 1.0 MICROGRAM/DAY

REACTIONS (4)
  - Administration site extravasation [Recovered/Resolved]
  - Erythema [Recovered/Resolved]
  - Venous thrombosis [Recovered/Resolved]
  - Vascular calcification [Recovered/Resolved]
